FAERS Safety Report 9253984 (Version 2)
Quarter: 2013Q3

REPORT INFORMATION
  Report Type: Spontaneous
  Country: US (occurrence: US)
  Receive Date: 20130425
  Receipt Date: 20130910
  Transmission Date: 20140515
  Serious: Yes (Disabling)
  Sender: FDA-Public Use
  Company Number: US-ASTRAZENECA-2013SE27420

PATIENT
  Age: 48 Year
  Sex: Female
  Weight: 78.9 kg

DRUGS (27)
  1. NEXIUM [Suspect]
     Indication: GASTROOESOPHAGEAL REFLUX DISEASE
     Route: 048
     Dates: start: 2005, end: 2012
  2. NEXIUM [Suspect]
     Indication: GASTROOESOPHAGEAL REFLUX DISEASE
     Route: 048
     Dates: start: 20090210
  3. OMEPRAZOLE [Suspect]
     Indication: GASTROOESOPHAGEAL REFLUX DISEASE
     Route: 048
     Dates: start: 2012
  4. PANTOPRAZOLE [Concomitant]
     Indication: GASTROOESOPHAGEAL REFLUX DISEASE
     Dates: start: 2012, end: 201303
  5. ALKA SELTZER [Concomitant]
     Dates: start: 1999, end: 2013
  6. MYLANTA [Concomitant]
     Dates: start: 2000, end: 2013
  7. GAVISCON [Concomitant]
  8. RANITIDINE [Concomitant]
     Indication: GASTROOESOPHAGEAL REFLUX DISEASE
     Dosage: 300 MG DAILY PRN
  9. ZYPREXA [Concomitant]
     Indication: DEPRESSION
  10. ZYPREXA [Concomitant]
     Indication: ANXIETY
  11. CYMBALTA [Concomitant]
     Indication: DEPRESSION
  12. CYMBALTA [Concomitant]
     Indication: ANXIETY
  13. AMITRIPTYLINE [Concomitant]
     Indication: DEPRESSION
  14. AMITRIPTYLINE [Concomitant]
     Indication: ANXIETY
  15. LYRICA [Concomitant]
     Indication: MULTIPLE ALLERGIES
  16. LYRICA [Concomitant]
     Indication: RHINITIS
  17. XYZAL [Concomitant]
     Indication: MULTIPLE ALLERGIES
  18. XYZAL [Concomitant]
     Indication: RHINITIS
  19. SINGULAIR [Concomitant]
     Indication: MULTIPLE ALLERGIES
  20. SINGULAIR [Concomitant]
     Indication: RHINITIS
  21. MULTIVITAMIN [Concomitant]
  22. CALCIUM [Concomitant]
  23. VITAMIN D [Concomitant]
  24. VITAMIN B12 [Concomitant]
  25. FISH OIL [Concomitant]
  26. LISINOPRIL [Concomitant]
     Route: 048
  27. ZOLPIDEM [Concomitant]
     Dosage: 5 MG AT NIGHT PRN

REACTIONS (13)
  - Back disorder [Unknown]
  - Movement disorder [Unknown]
  - Gastric disorder [Unknown]
  - Foot fracture [Unknown]
  - Osteoporosis [Unknown]
  - Arthritis [Unknown]
  - Bone disorder [Unknown]
  - Calcium deficiency [Unknown]
  - Back pain [Unknown]
  - Multiple fractures [Unknown]
  - Spinal column stenosis [Unknown]
  - Lumbar spinal stenosis [Unknown]
  - Vertebral foraminal stenosis [Unknown]
